FAERS Safety Report 6497543-6 (Version None)
Quarter: 2009Q4

REPORT INFORMATION
  Report Type: 
  Country: None (occurrence: None)
  Receive Date: 20091215
  Receipt Date: 20091204
  Transmission Date: 20100525
  Serious: Yes (Other)
  Sender: FDA-Public Use
  Company Number: US-JNJCH-2009031836

PATIENT
  Age: 53 Year
  Weight: 174.6 kg

DRUGS (3)
  1. BENGAY PAIN RELIEVING PATCH [Suspect]
     Indication: TOOTHACHE
     Dosage: TEXT:ONE PATCH ONCE
     Route: 061
     Dates: start: 20091125, end: 20091125
  2. INSULIN [Concomitant]
     Indication: DIABETES MELLITUS
     Dosage: TEXT:UNSPECIFIED
     Route: 065
  3. DRUG, UNSPECIFIED [Concomitant]
     Indication: DRUG USE FOR UNKNOWN INDICATION
     Dosage: TEXT:UNSPECIFIED
     Route: 065

REACTIONS (3)
  - FEELING ABNORMAL [None]
  - LIP SWELLING [None]
  - OFF LABEL USE [None]
